FAERS Safety Report 23830364 (Version 2)
Quarter: 2024Q2

REPORT INFORMATION
  Report Type: Spontaneous
  Country: US (occurrence: US)
  Receive Date: 20240508
  Receipt Date: 20240614
  Transmission Date: 20240716
  Serious: No
  Sender: FDA-Public Use
  Company Number: US-BRISTOL-MYERS SQUIBB COMPANY-2024-071294

PATIENT
  Age: 66 Year
  Sex: Female

DRUGS (2)
  1. REVLIMID [Suspect]
     Active Substance: LENALIDOMIDE
     Indication: Plasma cell myeloma
     Dosage: 21 DAYS THEN 7 DAYS OFF
     Route: 048
     Dates: start: 20240422
  2. REVLIMID [Suspect]
     Active Substance: LENALIDOMIDE
     Dosage: ONE DAILY FOR 21 DAYS, FOLLOWED BY 7-DAY BREAK
     Route: 048
     Dates: start: 20240422

REACTIONS (2)
  - Fatigue [Unknown]
  - Emotional disorder [Unknown]
